FAERS Safety Report 4654617-X (Version None)
Quarter: 2005Q2

REPORT INFORMATION
  Report Type: 
  Country: None (occurrence: None)
  Receive Date: 20050506
  Receipt Date: 20050411
  Transmission Date: 20051028
  Serious: Yes (Hospitalization)
  Sender: FDA-Public Use
  Company Number: US-AMGEN-US126035

PATIENT
  Sex: Female
  Weight: 76.3 kg

DRUGS (5)
  1. ENBREL [Suspect]
     Indication: RHEUMATOID ARTHRITIS
     Route: 058
     Dates: start: 20040501, end: 20050110
  2. METHOTREXATE [Suspect]
     Dates: start: 19940101
  3. PREDNISONE TAB [Suspect]
     Dates: start: 19940101
  4. GLUCOPHAGE [Concomitant]
     Dates: start: 20041101
  5. GLYBURIDE [Concomitant]
     Dates: start: 20040701

REACTIONS (4)
  - ARTHRITIS INFECTIVE [None]
  - KNEE ARTHROPLASTY [None]
  - STAPHYLOCOCCAL INFECTION [None]
  - WOUND INFECTION STAPHYLOCOCCAL [None]
